FAERS Safety Report 6370998-3 (Version None)
Quarter: 2009Q3

REPORT INFORMATION
  Report Type: 
  Country: None (occurrence: None)
  Receive Date: 20090923
  Receipt Date: 20090909
  Transmission Date: 20100115
  Serious: Yes (Other)
  Sender: FDA-Public Use
  Company Number: JP-PFIZER INC-2009267459

PATIENT
  Age: 23 Year

DRUGS (1)
  1. SOLU-MEDROL [Suspect]
     Indication: URTICARIA CHOLINERGIC
     Route: 042

REACTIONS (1)
  - EPILEPSY [None]
